FAERS Safety Report 8844211 (Version 1)
Quarter: 2012Q4

REPORT INFORMATION
  Report Type: 
  Country: US (occurrence: US)
  Receive Date: 20121016
  Receipt Date: 20121016
  Transmission Date: 20130627
  Serious: Yes (Hospitalization)
  Sender: FDA-Public Use
  Company Number: US-VERTEX PHARMACEUTICAL INC.-AE-2012-006075

PATIENT
  Age: 51 Year
  Sex: Male

DRUGS (3)
  1. VX-950 [Suspect]
     Indication: HEPATITIS C
     Dosage: 750 mg, tid
     Route: 048
     Dates: start: 20120324, end: 20120616
  2. RIBAVIRIN [Suspect]
     Indication: HEPATITIS C
     Dosage: 600mg am/400mg pm
     Route: 048
     Dates: start: 20120324
  3. PEGASYS [Concomitant]
     Indication: HEPATITIS C
     Dosage: 180, qw
     Route: 058
     Dates: start: 20120324

REACTIONS (1)
  - Anaemia [Not Recovered/Not Resolved]
